FAERS Safety Report 9276755 (Version 2)
Quarter: 2013Q3

REPORT INFORMATION
  Report Type: Spontaneous
  Country: GB (occurrence: GB)
  Receive Date: 20130507
  Receipt Date: 20130716
  Transmission Date: 20140515
  Serious: Yes (Other)
  Sender: FDA-Public Use
  Company Number: PHFR2013GB002593

PATIENT
  Age: 57 Year
  Sex: Male

DRUGS (4)
  1. CLOZARIL [Suspect]
     Dosage: UNK
     Route: 048
     Dates: start: 20130117
  2. PROCYCLIDINE [Concomitant]
     Dosage: 15 MG, UNK
     Route: 048
  3. TERBINAFINE [Concomitant]
     Indication: ONYCHOMYCOSIS
     Dosage: 15 MG, UNK
     Route: 048
     Dates: end: 201304
  4. HYOSCINE HYDROBROMIDE [Concomitant]
     Indication: SALIVARY HYPERSECRETION
     Dosage: 900 UG, UNK
     Route: 048

REACTIONS (4)
  - Tooth infection [Unknown]
  - Localised infection [Unknown]
  - Nail bed infection bacterial [Recovering/Resolving]
  - Tooth abscess [Recovered/Resolved]
